FAERS Safety Report 10189247 (Version 2)
Quarter: 2014Q2

REPORT INFORMATION
  Report Type: Spontaneous
  Country: US (occurrence: US)
  Receive Date: 20140522
  Receipt Date: 20140604
  Transmission Date: 20141212
  Serious: No
  Sender: FDA-Public Use
  Company Number: US-009507513-1405USA011406

PATIENT
  Sex: Female
  Weight: 86.17 kg

DRUGS (9)
  1. OXYTROL FOR WOMEN [Suspect]
     Indication: NOCTURIA
     Dosage: 1 DF, Q4D
     Route: 062
     Dates: start: 2014, end: 20140507
  2. ASCORBIC ACID [Concomitant]
  3. VITAMIN D (UNSPECIFIED) [Concomitant]
  4. CALCIUM (UNSPECIFIED) [Concomitant]
  5. DIVIGEL [Concomitant]
  6. LORAZEPAM [Concomitant]
  7. ARTHROTEC [Concomitant]
  8. MAGNESIUM (UNSPECIFIED) [Concomitant]
  9. ASPIRIN [Concomitant]

REACTIONS (4)
  - Impaired driving ability [Recovered/Resolved]
  - Activities of daily living impaired [Recovered/Resolved]
  - Vision blurred [Recovered/Resolved]
  - Drug effect delayed [Unknown]
